FAERS Safety Report 18487195 (Version 2)
Quarter: 2020Q4

REPORT INFORMATION
  Report Type: Spontaneous
  Country: JP (occurrence: JP)
  Receive Date: 20201110
  Receipt Date: 20201118
  Transmission Date: 20210114
  Serious: Yes (Death, Life-Threatening, Hospitalization, Other)
  Sender: FDA-Public Use
  Company Number: JP-PFIZER INC-2020437030

PATIENT
  Age: 56 Year
  Sex: Female

DRUGS (1)
  1. GEMCITABINE HYDROCHLORIDE. [Suspect]
     Active Substance: GEMCITABINE HYDROCHLORIDE
     Indication: PANCREATIC CARCINOMA
     Dosage: UNK, CYCLIC
     Route: 048
     Dates: start: 200905, end: 2009

REACTIONS (11)
  - Capillary leak syndrome [Recovered/Resolved]
  - Dyspnoea exertional [Recovered/Resolved]
  - Nausea [Unknown]
  - Proteinuria [Unknown]
  - Pericardial effusion [Recovered/Resolved]
  - Blood urine [Unknown]
  - Face oedema [Recovered/Resolved]
  - Oedema peripheral [Recovered/Resolved]
  - Fatigue [Unknown]
  - Anaemia [Unknown]
  - Cardiac failure [Recovered/Resolved]

NARRATIVE: CASE EVENT DATE: 2009
